FAERS Safety Report 19450774 (Version 2)
Quarter: 2021Q3

REPORT INFORMATION
  Report Type: Report from Study
  Country: None (occurrence: US)
  Receive Date: 20210622
  Receipt Date: 20210712
  Transmission Date: 20211014
  Serious: Yes (Other)
  Sender: FDA-Public Use
  Company Number: US-ABBVIE-21K-163-3954277-00

PATIENT
  Age: 59 Year
  Sex: Female
  Weight: 113.5 kg

DRUGS (1)
  1. SKYRIZI [Suspect]
     Active Substance: RISANKIZUMAB-RZAA
     Indication: PSORIASIS
     Route: 058
     Dates: start: 20201128

REACTIONS (8)
  - Osteoarthritis [Unknown]
  - Blindness [Unknown]
  - Postmenopausal haemorrhage [Unknown]
  - Stress [Unknown]
  - Therapeutic response unexpected [Unknown]
  - Pre-existing condition improved [Recovering/Resolving]
  - Intermenstrual bleeding [Recovered/Resolved]
  - Endometrial hyperplasia [Not Recovered/Not Resolved]

NARRATIVE: CASE EVENT DATE: 202102
